FAERS Safety Report 7933719-6 (Version None)
Quarter: 2011Q4

REPORT INFORMATION
  Report Type: 
  Country: None (occurrence: None)
  Receive Date: 20111122
  Receipt Date: 20111116
  Transmission Date: 20120403
  Serious: Yes (Other)
  Sender: FDA-Public Use
  Company Number: PHHY2010BR63316

PATIENT
  Sex: Female

DRUGS (2)
  1. FORMOTEROL FUMARATE [Suspect]
     Indication: ASTHMA
     Dates: start: 20100901
  2. DESMOPRESSIN ACETATE [Concomitant]
     Indication: DIABETES INSIPIDUS
     Dosage: 0.1 MG, QD

REACTIONS (4)
  - PRE-ECLAMPSIA [None]
  - SWELLING [None]
  - BLOOD PRESSURE INCREASED [None]
  - MATERNAL EXPOSURE DURING PREGNANCY [None]
